FAERS Safety Report 16729553 (Version 4)
Quarter: 2019Q3

REPORT INFORMATION
  Report Type: Spontaneous
  Country: US (occurrence: US)
  Receive Date: 20190822
  Receipt Date: 20190829
  Transmission Date: 20191005
  Serious: Yes (Other)
  Sender: FDA-Public Use
  Company Number: US-PFIZER INC-2019359561

PATIENT
  Age: 71 Year
  Sex: Female

DRUGS (1)
  1. LYRICA [Suspect]
     Active Substance: PREGABALIN
     Dosage: 150 MG, UNK

REACTIONS (6)
  - Pain [Unknown]
  - Nausea [Unknown]
  - Irritability [Unknown]
  - Malaise [Not Recovered/Not Resolved]
  - Paraesthesia [Unknown]
  - Drug dependence [Unknown]
